FAERS Safety Report 6165527-3 (Version None)
Quarter: 2009Q2

REPORT INFORMATION
  Report Type: 
  Country: None (occurrence: None)
  Receive Date: 20090423
  Receipt Date: 20090415
  Transmission Date: 20091009
  Serious: Yes (Hospitalization)
  Sender: FDA-Public Use
  Company Number: CA-JNJFOC-20090404270

PATIENT
  Sex: Male
  Weight: 53.8 kg

DRUGS (3)
  1. REMICADE [Suspect]
     Dosage: MOST RECENT INFUSION/4TH INFUSION
     Route: 042
  2. REMICADE [Suspect]
     Route: 042
  3. REMICADE [Suspect]
     Indication: CROHN'S DISEASE
     Dosage: 2 DOSES AT 300 MG
     Route: 042

REACTIONS (3)
  - CROHN'S DISEASE [None]
  - NEPHROLITHIASIS [None]
  - RENAL COLIC [None]
